FAERS Safety Report 13646626 (Version 1)
Quarter: 2017Q2

REPORT INFORMATION
  Report Type: Spontaneous
  Country: US (occurrence: US)
  Receive Date: 20170612
  Receipt Date: 20170612
  Transmission Date: 20170830
  Serious: Yes (Hospitalization)
  Sender: FDA-Public Use
  Company Number: None

PATIENT
  Age: 48 Year
  Sex: Female

DRUGS (8)
  1. MOXIFLOX [Concomitant]
     Active Substance: MOXIFLOXACIN
  2. METRONID [Concomitant]
  3. LEVOFLOX [Concomitant]
     Active Substance: LEVOFLOXACIN
  4. VITAMIN D [Concomitant]
     Active Substance: CHOLECALCIFEROL
  5. ONDANSETRON [Concomitant]
     Active Substance: ONDANSETRON
  6. LONSURF [Suspect]
     Active Substance: TIPIRACIL HYDROCHLORIDE\TRIFLURIDINE
     Indication: COLON CANCER
     Dosage: 3 TABS BID DS 1-5 + 8-12 PO
     Route: 048
     Dates: start: 201703
  7. OXYCO/APAP [Concomitant]
  8. AVASTIN [Concomitant]
     Active Substance: BEVACIZUMAB

REACTIONS (4)
  - Nausea [None]
  - Intestinal obstruction [None]
  - Vomiting [None]
  - Scar [None]

NARRATIVE: CASE EVENT DATE: 201704
